FAERS Safety Report 22226143 (Version 5)
Quarter: 2024Q4

REPORT INFORMATION
  Report Type: Spontaneous
  Country: IN (occurrence: IN)
  Receive Date: 20230419
  Receipt Date: 20241029
  Transmission Date: 20250115
  Serious: Yes (Other)
  Sender: PFIZER
  Company Number: IN-PFIZER INC-202101484528

PATIENT
  Age: 80 Year
  Sex: Female

DRUGS (1)
  1. AROMASIN [Suspect]
     Active Substance: EXEMESTANE
     Indication: Breast cancer metastatic
     Dosage: 25 MG, 1X/DAY
     Route: 048
     Dates: start: 20210228

REACTIONS (4)
  - Tooth fracture [Unknown]
  - Pain [Unknown]
  - Neoplasm progression [Unknown]
  - Tetany [Unknown]
